FAERS Safety Report 5331708-1 (Version None)
Quarter: 2007Q2

REPORT INFORMATION
  Report Type: 
  Country: None (occurrence: None)
  Receive Date: 20070516
  Receipt Date: 20070504
  Transmission Date: 20071010
  Serious: Yes (Other)
  Sender: FDA-Public Use
  Company Number: 16432

PATIENT
  Age: 30 Year
  Sex: Male

DRUGS (7)
  1. PHYSOSTIGMINE [Suspect]
     Indication: COMA
     Dosage: 1 MG FREQ IV
     Route: 042
  2. GAMMA-HYDROXYBUTYRATE [Suspect]
  3. DEXTROSE [Concomitant]
  4. NALOXONE [Concomitant]
  5. LORAZEPAM [Concomitant]
  6. MIDAZOLAM HCL [Concomitant]
  7. PROPOFOL [Concomitant]

REACTIONS (7)
  - AGITATION [None]
  - DRUG INTERACTION [None]
  - DRUG TOXICITY [None]
  - HYPOTENSION [None]
  - LOSS OF CONSCIOUSNESS [None]
  - LUNG INFILTRATION [None]
  - UNRESPONSIVE TO STIMULI [None]
